FAERS Safety Report 6039121-9 (Version None)
Quarter: 2009Q1

REPORT INFORMATION
  Report Type: 
  Country: None (occurrence: None)
  Receive Date: 20090115
  Receipt Date: 20090109
  Transmission Date: 20090719
  Serious: Yes (Hospitalization, Other)
  Sender: FDA-Public Use
  Company Number: FR-ELI_LILLY_AND_COMPANY-FR200901001190

PATIENT
  Sex: Male
  Weight: 56 kg

DRUGS (9)
  1. GEMZAR [Suspect]
     Indication: PANCREATIC CARCINOMA
     Dosage: 1000 MG/M2, WEEKLY, FOR 7 WEEKS FOLLOWED BY 1 WEEK REST
     Route: 042
     Dates: start: 20080822
  2. GEMZAR [Suspect]
     Dosage: 1000 MG/M2, WEEKLY, FOR 3 WEEKS FOLLOWED BY 1 WEEK REST
     Route: 042
     Dates: start: 20081017
  3. GEMZAR [Suspect]
     Dosage: 1000 MG/M2, WEEKLY, FOR 3 WEEKS FOLLOWED BY 1 WEEK REST
     Route: 042
     Dates: start: 20081121
  4. CALCIPARINE [Concomitant]
     Indication: THROMBOPHLEBITIS
     Dosage: 2 IU, UNKNOWN
     Route: 058
     Dates: start: 20081106, end: 20081121
  5. CALCIPARINE [Concomitant]
     Dosage: UNK, UNKNOWN
     Route: 058
     Dates: start: 20081126
  6. PREVISCAN [Concomitant]
     Dosage: 0.25 DSGF DAILY (1/D)
     Route: 065
  7. PREVISCAN [Concomitant]
     Dosage: 0.5 DSGF DAILY (1/D)
     Route: 065
     Dates: end: 20081123
  8. PREVISCAN [Concomitant]
     Dosage: 0.25 DSGF , DAILY (1/D)
     Route: 065
     Dates: start: 20081125
  9. ORGARAN [Concomitant]
     Dosage: UNK, UNKNOWN
     Route: 065

REACTIONS (4)
  - HYPOGLYCAEMIA [None]
  - INTERNATIONAL NORMALISED RATIO INCREASED [None]
  - THROMBOCYTOPENIA [None]
  - THROMBOPHLEBITIS [None]
